FAERS Safety Report 16935056 (Version 1)
Quarter: 2019Q4

REPORT INFORMATION
  Report Type: Spontaneous
  Country: US (occurrence: US)
  Receive Date: 20190827
  Receipt Date: 20190827
  Transmission Date: 20200122
  Serious: Yes (Death)
  Sender: FDA-Public Use
  Company Number: None

PATIENT
  Age: 85 Year
  Sex: Male
  Weight: 95.25 kg

DRUGS (2)
  1. FOLIC ACID 1 MG TABLET, 1 MG [Suspect]
     Active Substance: FOLIC ACID
     Indication: RHEUMATOID ARTHRITIS
     Route: 048
     Dates: start: 201807
  2. METHOTREXATE 2.5 MG TABLET, 2.5 MG [Suspect]
     Active Substance: METHOTREXATE
     Indication: RHEUMATOID ARTHRITIS
     Dosage: ?          OTHER DOSE:TAKE 8 TABLETS;OTHER FREQUENCY:SAME TIME EACH WK;?
     Route: 048
     Dates: start: 201711

REACTIONS (1)
  - Death [None]
